FAERS Safety Report 7969059-9 (Version None)
Quarter: 2011Q4

REPORT INFORMATION
  Report Type: 
  Country: None (occurrence: None)
  Receive Date: 20111208
  Receipt Date: 20111128
  Transmission Date: 20120403
  Serious: Yes (Life-Threatening, Hospitalization)
  Sender: FDA-Public Use
  Company Number: TCI2011A04365

PATIENT
  Age: 48 Year
  Sex: Male

DRUGS (8)
  1. RABEPRAZOLE SODIUM [Concomitant]
  2. MICARDIS [Concomitant]
  3. ACTOS [Suspect]
     Dosage: 15 MG (15 MG,L IN 1 D) PER ORAL, 30 MG (30 MG, 1 IN 1 D) PER ORA
     Route: 048
     Dates: start: 20090711
  4. ACTOS [Suspect]
     Dosage: 15 MG (15 MG,L IN 1 D) PER ORAL, 30 MG (30 MG, 1 IN 1 D) PER ORA
     Route: 048
     Dates: start: 20090612, end: 20090710
  5. ZETIA [Concomitant]
  6. AMARYL [Concomitant]
  7. BEZATOL SR (BEZAFIBRATE) [Concomitant]
  8. GASTROM (ECABET MONOSODIUM) [Concomitant]

REACTIONS (1)
  - BLADDER TRANSITIONAL CELL CARCINOMA [None]
